FAERS Safety Report 21384213 (Version 1)
Quarter: 2022Q3

REPORT INFORMATION
  Report Type: Spontaneous
  Country: AU (occurrence: AU)
  Receive Date: 20220928
  Receipt Date: 20220928
  Transmission Date: 20221026
  Serious: No
  Sender: FDA-Public Use
  Company Number: AU-LUPIN PHARMACEUTICALS INC.-2022-11372

PATIENT
  Age: 53 Year
  Sex: Female

DRUGS (1)
  1. VORICONAZOLE [Suspect]
     Active Substance: VORICONAZOLE
     Indication: Cutaneous T-cell lymphoma
     Dosage: 400 MG, QD
     Route: 048

REACTIONS (1)
  - Photosensitivity reaction [Unknown]
